FAERS Safety Report 6712010-X (Version None)
Quarter: 2010Q2

REPORT INFORMATION
  Report Type: 
  Country: None (occurrence: None)
  Receive Date: 20100505
  Receipt Date: 20100423
  Transmission Date: 20101027
  Serious: Yes (Disabling, Other)
  Sender: FDA-Public Use
  Company Number: US-PFIZER INC-2010051938

PATIENT
  Sex: Male
  Weight: 129 kg

DRUGS (7)
  1. LYRICA [Suspect]
     Dosage: UNK
     Route: 048
     Dates: start: 20070101, end: 20080101
  2. CARBATROL [Concomitant]
     Indication: EPILEPSY
     Dosage: UNK MG, UNK
     Route: 048
  3. PHENOBARBITAL [Concomitant]
     Indication: EPILEPSY
     Dosage: 100 MG, 3X/DAY
     Route: 048
  4. SEROQUEL [Concomitant]
     Indication: BIPOLAR DISORDER
     Dosage: UNK MG, UNK
  5. SEROQUEL [Concomitant]
     Indication: SLEEP DISORDER
  6. CELEXA [Concomitant]
     Indication: DEPRESSION
     Dosage: 20 MG, UNK
  7. TRAZODONE HYDROCHLORIDE [Concomitant]
     Indication: SLEEP DISORDER
     Dosage: 200 MG, AT BED TIME

REACTIONS (5)
  - ENURESIS [None]
  - FEELING ABNORMAL [None]
  - MOTOR DYSFUNCTION [None]
  - NEUROMUSCULAR BLOCKADE [None]
  - SUICIDE ATTEMPT [None]
